FAERS Safety Report 6841259-0 (Version None)
Quarter: 2010Q3

REPORT INFORMATION
  Report Type: 
  Country: None (occurrence: None)
  Receive Date: 20100714
  Receipt Date: 20070627
  Transmission Date: 20110219
  Serious: No
  Sender: FDA-Public Use
  Company Number: US-PFIZER INC-2007054161

PATIENT
  Sex: Female
  Weight: 81.6 kg

DRUGS (10)
  1. CHANTIX [Suspect]
     Indication: SMOKING CESSATION THERAPY
     Dates: start: 20070415
  2. MORPHINE [Concomitant]
  3. DILAUDID [Concomitant]
  4. LISINOPRIL [Concomitant]
     Indication: HYPERTENSION
  5. THEOPHYLLINE [Concomitant]
  6. BENADRYL [Concomitant]
  7. PROTONIX [Concomitant]
  8. BACLOFEN [Concomitant]
  9. ADVAIR DISKUS 100/50 [Concomitant]
  10. IBANDRONATE SODIUM [Concomitant]

REACTIONS (1)
  - SLEEP DISORDER [None]
